FAERS Safety Report 19570341 (Version 1)
Quarter: 2021Q3

REPORT INFORMATION
  Report Type: Spontaneous
  Country: US (occurrence: US)
  Receive Date: 20210715
  Receipt Date: 20210715
  Transmission Date: 20211014
  Serious: Yes (Hospitalization)
  Sender: FDA-Public Use
  Company Number: US-TAKEDA-2021TUS043253

PATIENT
  Sex: Female
  Weight: 60 kg

DRUGS (2)
  1. VELCADE [Suspect]
     Active Substance: BORTEZOMIB
     Indication: PLASMA CELL MYELOMA
     Dosage: 2.2 MILLIGRAM
     Route: 065
     Dates: start: 20201123
  2. VELCADE [Suspect]
     Active Substance: BORTEZOMIB
     Dosage: UNK
     Route: 065
     Dates: start: 20210614

REACTIONS (3)
  - Dizziness [Unknown]
  - Asthenia [Unknown]
  - Heart rate decreased [Unknown]
